FAERS Safety Report 6812518-2 (Version None)
Quarter: 2010Q3

REPORT INFORMATION
  Report Type: 
  Country: None (occurrence: None)
  Receive Date: 20100701
  Receipt Date: 20100629
  Transmission Date: 20110219
  Serious: Yes (Other)
  Sender: FDA-Public Use
  Company Number: A0867628A

PATIENT
  Age: 35 Year
  Sex: Female

DRUGS (1)
  1. ALLI [Suspect]
     Indication: WEIGHT LOSS DIET
     Route: 048

REACTIONS (5)
  - INTENTIONAL DRUG MISUSE [None]
  - OVERDOSE [None]
  - STEATORRHOEA [None]
  - THERAPEUTIC RESPONSE UNEXPECTED [None]
  - TREATMENT NONCOMPLIANCE [None]
